FAERS Safety Report 17435282 (Version 3)
Quarter: 2020Q1

REPORT INFORMATION
  Report Type: Report from Study
  Country: US (occurrence: US)
  Receive Date: 20200219
  Receipt Date: 20200324
  Transmission Date: 20200409
  Serious: Yes (Hospitalization, Other)
  Sender: FDA-Public Use
  Company Number: NVSC2020US038561

PATIENT
  Age: 68 Year
  Sex: Male

DRUGS (12)
  1. LEVOTHYROXINE. [Concomitant]
     Active Substance: LEVOTHYROXINE
     Indication: HYPOTHYROIDISM
     Dosage: 75 UG, QD (1 IN 1 DAY)
     Route: 048
     Dates: start: 201509
  2. TRESIBA [Concomitant]
     Active Substance: INSULIN DEGLUDEC
     Indication: HYPERGLYCAEMIA
     Dosage: 60 IU
     Route: 058
     Dates: start: 20190830
  3. DENOSUMAB [Concomitant]
     Active Substance: DENOSUMAB
     Indication: PROPHYLAXIS
     Dosage: 120 MG, QMO
     Route: 058
     Dates: start: 20180911
  4. TRIAMCINOLONE ACETONIDE. [Concomitant]
     Active Substance: TRIAMCINOLONE ACETONIDE
     Indication: RASH
     Dosage: 0.005 UNK, BID (TWICE A DAY AS REQUIRED)
     Route: 061
     Dates: start: 2008
  5. CLINDAMYCIN. [Concomitant]
     Active Substance: CLINDAMYCIN
     Indication: PRODUCT USED FOR UNKNOWN INDICATION
     Dosage: 5 MG, BID (10 MG, (2 IN 1 DAY))
     Route: 058
     Dates: start: 20200121
  6. ZORTRESS [Suspect]
     Active Substance: EVEROLIMUS
     Dosage: 10 MG, QD
     Route: 048
     Dates: start: 20200126, end: 20200126
  7. OXYTOCIN. [Concomitant]
     Active Substance: OXYTOCIN
     Indication: FRACTURE PAIN
     Dosage: 15 MG, BID
     Route: 048
     Dates: start: 20190114
  8. CLOTRIMAZOLE AND BETAMETHASONE [Concomitant]
     Active Substance: BETAMETHASONE\CLOTRIMAZOLE
     Indication: FUNGAL SKIN INFECTION
     Dosage: UNK
     Route: 061
     Dates: start: 20181022
  9. ZORTRESS [Suspect]
     Active Substance: EVEROLIMUS
     Indication: RENAL CELL CARCINOMA
     Dosage: 1600 MG, QD
     Route: 048
     Dates: start: 20180827, end: 20180827
  10. FEBUXOSTAT. [Concomitant]
     Active Substance: FEBUXOSTAT
     Indication: GOUT
     Dosage: 40 MG, (1 IN 1 DAY)
     Route: 048
     Dates: start: 201503
  11. CRESTOR [Concomitant]
     Active Substance: ROSUVASTATIN CALCIUM
     Indication: BLOOD CHOLESTEROL INCREASED
     Dosage: 10 MG, QD (1 IN 1 DAY)
     Route: 048
     Dates: start: 2008
  12. BENADRYL [Concomitant]
     Active Substance: DIPHENHYDRAMINE HYDROCHLORIDE
     Indication: PRURITUS
     Dosage: 25 MG, PRN
     Route: 048
     Dates: start: 201803

REACTIONS (5)
  - Pulmonary mass [Unknown]
  - Cough [Unknown]
  - Pneumonitis [Recovered/Resolved]
  - Hypoxia [Unknown]
  - Fibrin D dimer increased [Unknown]

NARRATIVE: CASE EVENT DATE: 20200126
